FAERS Safety Report 11100044 (Version 7)
Quarter: 2016Q1

REPORT INFORMATION
  Report Type: Spontaneous
  Country: US (occurrence: US)
  Receive Date: 20150508
  Receipt Date: 20160309
  Transmission Date: 20160525
  Serious: Yes (Hospitalization, Other)
  Sender: FDA-Public Use
  Company Number: US-DSJP-DSU-2015-113826

PATIENT
  Age: 68 Year
  Sex: Female
  Weight: 54 kg

DRUGS (49)
  1. REVATIO [Suspect]
     Active Substance: SILDENAFIL CITRATE
     Indication: HYPERTENSION
     Dosage: 20 MG, TID
     Route: 048
  2. LASIX [Suspect]
     Active Substance: FUROSEMIDE
     Indication: DIURETIC THERAPY
     Dosage: 40 UNK (1 IN AM)
     Dates: end: 201501
  3. LASIX [Suspect]
     Active Substance: FUROSEMIDE
     Dosage: UNK
     Dates: end: 201501
  4. FOLIC ACID. [Concomitant]
     Active Substance: FOLIC ACID
     Indication: PRODUCT USED FOR UNKNOWN INDICATION
     Dosage: 800 ?G, BID AM AND PM
     Route: 048
  5. CALCIUM + VITAMIN D                /01483701/ [Concomitant]
     Active Substance: CALCIUM\VITAMIN D
     Indication: PRODUCT USED FOR UNKNOWN INDICATION
     Dosage: UNK, QD
     Route: 048
  6. MIRAPEX [Concomitant]
     Active Substance: PRAMIPEXOLE DIHYDROCHLORIDE
     Indication: RESTLESS LEGS SYNDROME
     Dosage: 0.5 MG, QD 1 1/2 PM
  7. L-THYROXIN [Concomitant]
     Active Substance: LEVOTHYROXINE SODIUM
     Indication: THYROID DISORDER
     Dosage: 75 MG, QD
  8. METOPROLOL. [Concomitant]
     Active Substance: METOPROLOL
     Indication: PRODUCT USED FOR UNKNOWN INDICATION
     Dosage: 50 MG, BID
     Dates: start: 20150102, end: 20150105
  9. LASIX [Suspect]
     Active Substance: FUROSEMIDE
     Dosage: 20 MG, QD IN AM
     Route: 048
     Dates: end: 201501
  10. PLAQUENIL [Concomitant]
     Active Substance: HYDROXYCHLOROQUINE SULFATE
     Indication: OSTEOARTHRITIS
  11. CHONDROITIN GLUCOSAMIN [Concomitant]
     Active Substance: CHONDROITIN SULFATE A\GLUCOSAMINE
     Indication: ARTHRITIS
     Dosage: 1500 MG, BID
     Route: 048
  12. HYDROXYCHLOROQUINE [Suspect]
     Active Substance: HYDROXYCHLOROQUINE
     Indication: OSTEOARTHRITIS
     Dosage: 200 MG, BID
     Route: 048
  13. ZITHROMAX [Concomitant]
     Active Substance: AZITHROMYCIN DIHYDRATE
  14. RESTASIS [Concomitant]
     Active Substance: CYCLOSPORINE
  15. VITAMIN C [Concomitant]
     Active Substance: ASCORBIC ACID
  16. VERAPAMIL HCL [Suspect]
     Active Substance: VERAPAMIL HYDROCHLORIDE
     Dosage: 400 MG, QD
  17. LASIX [Suspect]
     Active Substance: FUROSEMIDE
     Indication: FLUID RETENTION
     Dosage: 80 MG, QD
     Route: 048
  18. RANITIDINE [Concomitant]
     Active Substance: RANITIDINE\RANITIDINE HYDROCHLORIDE
     Indication: GASTROOESOPHAGEAL REFLUX DISEASE
     Dosage: 150 MG, BID
  19. PROAIR HFA [Concomitant]
     Active Substance: ALBUTEROL SULFATE
     Indication: DYSPNOEA
     Dosage: 2 PUFFS 4 TIMES A DAY PRN
     Route: 048
  20. OMEGA 3 FISH OIL                   /01334101/ [Concomitant]
     Active Substance: FISH OIL
     Indication: PRODUCT USED FOR UNKNOWN INDICATION
     Dosage: 2 DAY TRIPLE STRENGTH 860 EPA/ 580 DHA
     Route: 048
  21. MULTIVITAMIN                       /00097801/ [Concomitant]
     Active Substance: VITAMINS
     Indication: PRODUCT USED FOR UNKNOWN INDICATION
     Dosage: UNK, QD
     Route: 048
  22. SPIRONOLACTONE. [Concomitant]
     Active Substance: SPIRONOLACTONE
     Indication: HYPERTENSION
     Dosage: 1/4 TAB QAM
     Dates: start: 201208
  23. SYNTHROID [Concomitant]
     Active Substance: LEVOTHYROXINE SODIUM
  24. POLYMYXIN B -TRIMETHOPRIM OPHTHA. [Concomitant]
  25. SYSTANE BALANCE [Concomitant]
     Active Substance: PROPYLENE GLYCOL
  26. BENICAR [Suspect]
     Active Substance: OLMESARTAN MEDOXOMIL
     Indication: HYPERTENSION
     Dosage: 10 MG, BID
     Route: 048
     Dates: start: 2014
  27. REVATIO [Suspect]
     Active Substance: SILDENAFIL CITRATE
     Dosage: 20 MG, TID
     Dates: end: 20151110
  28. REVATIO [Suspect]
     Active Substance: SILDENAFIL CITRATE
     Dosage: 20 MG, BID
     Route: 048
  29. LASIX [Suspect]
     Active Substance: FUROSEMIDE
     Dosage: 40 UNK, UNK (ON HOLD 40)
  30. METHOTREXATE [Concomitant]
     Active Substance: METHOTREXATE
     Indication: ARTHRITIS
     Dosage: 2.5 MG, (4 TABLETS) ONCE EVERY 1 WK ON THURSDAY
     Route: 048
  31. AMLODIPINE BESYLATE. [Concomitant]
     Active Substance: AMLODIPINE BESYLATE
     Indication: HYPERTENSION
     Dosage: 5 MG, BID
     Dates: start: 20130109
  32. POTASSIUM [Concomitant]
     Active Substance: POTASSIUM
     Indication: PRODUCT USED FOR UNKNOWN INDICATION
     Dosage: UNK
  33. AMLODIPINE BESILATE [Concomitant]
     Active Substance: AMLODIPINE BESYLATE
     Dosage: UNK
  34. PLAQUENIL [Concomitant]
     Active Substance: HYDROXYCHLOROQUINE SULFATE
     Dosage: UNK
  35. BENICAR [Suspect]
     Active Substance: OLMESARTAN MEDOXOMIL
     Dosage: 1/2 (20 MG) TABLET, BID
     Dates: start: 20150105
  36. VERAPAMIL HCL [Suspect]
     Active Substance: VERAPAMIL HYDROCHLORIDE
     Dosage: 200 MG, QD
     Route: 048
  37. PROTONIX [Concomitant]
     Active Substance: PANTOPRAZOLE SODIUM
     Indication: GASTROOESOPHAGEAL REFLUX DISEASE
     Dosage: 40 MG, QD IN PM
     Route: 048
  38. PLAQUENIL [Concomitant]
     Active Substance: HYDROXYCHLOROQUINE SULFATE
     Indication: ARTHRITIS
     Dosage: 200 MG, BID
     Route: 048
  39. FERROUS SULFATE [Concomitant]
     Active Substance: FERROUS SULFATE\FERROUS SULFATE, DRIED
     Indication: BLOOD IRON
     Dosage: 65 MG, QD 1 AM
  40. ULORIC [Concomitant]
     Active Substance: FEBUXOSTAT
     Indication: RENAL DISORDER
     Dosage: 40 MG, QD
     Route: 048
  41. TYLENOL [Concomitant]
     Active Substance: ACETAMINOPHEN
  42. REVATIO [Suspect]
     Active Substance: SILDENAFIL CITRATE
     Indication: PULMONARY HYPERTENSION
     Dosage: 20 MG, TID
     Route: 048
  43. VERAPAMIL HCL [Suspect]
     Active Substance: VERAPAMIL HYDROCHLORIDE
     Dosage: 200 MG, QD
  44. HYDROXYCHLOROQUINE [Suspect]
     Active Substance: HYDROXYCHLOROQUINE
     Indication: ARTHRITIS
  45. ASPIRIN                            /00002701/ [Concomitant]
     Active Substance: ASPIRIN
     Indication: PRODUCT USED FOR UNKNOWN INDICATION
     Dosage: UNK
  46. PROBIOTICS                         /07325001/ [Concomitant]
     Active Substance: BIFIDOBACTERIUM LONGUM\LACTOBACILLUS ACIDOPHILUS\LACTOBACILLUS RHAMNOSUS
     Indication: PRODUCT USED FOR UNKNOWN INDICATION
     Dosage: UNK, QD
     Route: 048
     Dates: start: 201502
  47. VERAPAMIL HCL [Suspect]
     Active Substance: VERAPAMIL HYDROCHLORIDE
     Indication: HYPERTENSION
     Dosage: 200 MG, BID
     Route: 048
  48. ROCEPHIN [Concomitant]
     Active Substance: CEFTRIAXONE SODIUM
  49. OMEPRAZOLE. [Concomitant]
     Active Substance: OMEPRAZOLE

REACTIONS (16)
  - Hypertension [Recovered/Resolved]
  - Hypocalcaemia [Unknown]
  - Haematochezia [Not Recovered/Not Resolved]
  - Fall [Unknown]
  - Cardiac failure congestive [Recovered/Resolved]
  - Peripheral swelling [Unknown]
  - Eye infection [Recovered/Resolved]
  - Pneumonia [Recovered/Resolved]
  - Anaemia [Not Recovered/Not Resolved]
  - Oedema [Recovered/Resolved]
  - Pericardial effusion [Unknown]
  - Gout [Recovered/Resolved]
  - Diarrhoea [Unknown]
  - Chronic kidney disease [Unknown]
  - Acute respiratory distress syndrome [Unknown]
  - Melaena [Unknown]

NARRATIVE: CASE EVENT DATE: 20141225
